FAERS Safety Report 13608839 (Version 1)
Quarter: 2017Q2

REPORT INFORMATION
  Report Type: Spontaneous
  Country: US (occurrence: US)
  Receive Date: 20170602
  Receipt Date: 20170602
  Transmission Date: 20170830
  Serious: Yes (Other)
  Sender: FDA-Public Use
  Company Number: US-TEVA-773621USA

PATIENT
  Age: 28 Year
  Sex: Female

DRUGS (6)
  1. ENALAPRIL [Suspect]
     Active Substance: ENALAPRIL
     Dosage: 10 MILLIGRAM DAILY;
  2. FUROSEMIDE. [Suspect]
     Active Substance: FUROSEMIDE
     Dosage: 40 MILLIGRAM DAILY;
     Dates: start: 201609, end: 201609
  3. LISINOPRIL. [Suspect]
     Active Substance: LISINOPRIL
     Indication: PERIPARTUM CARDIOMYOPATHY
     Dosage: 20 MILLIGRAM DAILY;
     Dates: start: 20160828
  4. CARVEDILOL. [Suspect]
     Active Substance: CARVEDILOL
     Dosage: 18.75 MG IN AM, 12.5MG AT NIGHT
     Route: 065
  5. PRENATAL VITAMIN [Concomitant]
     Active Substance: VITAMINS
  6. SPIRONOLACTONE. [Suspect]
     Active Substance: SPIRONOLACTONE
     Dosage: 25MG, TAKES HALF

REACTIONS (4)
  - Dizziness [Not Recovered/Not Resolved]
  - Cardiomyopathy [Not Recovered/Not Resolved]
  - Dyspnoea [Not Recovered/Not Resolved]
  - Cardiac resynchronisation therapy [Recovered/Resolved]

NARRATIVE: CASE EVENT DATE: 2017
